FAERS Safety Report 7299312-6 (Version None)
Quarter: 2011Q1

REPORT INFORMATION
  Report Type: 
  Country: None (occurrence: None)
  Receive Date: 20110217
  Receipt Date: 20110214
  Transmission Date: 20110831
  Serious: Yes (Hospitalization, Congenital Anomaly)
  Sender: FDA-Public Use
  Company Number: A0687265A

PATIENT
  Sex: Male

DRUGS (2)
  1. XANAX [Concomitant]
     Route: 064
     Dates: start: 19850101
  2. PAXIL [Suspect]
     Indication: DEPRESSION
     Dosage: 20MG PER DAY
     Route: 064
     Dates: start: 19970904, end: 20041113

REACTIONS (8)
  - ATTENTION DEFICIT/HYPERACTIVITY DISORDER [None]
  - CONGENITAL FOOT MALFORMATION [None]
  - HEART DISEASE CONGENITAL [None]
  - ADRENOGENITAL SYNDROME [None]
  - CARDIAC MURMUR [None]
  - DRUG EXPOSURE DURING PREGNANCY [None]
  - ABNORMAL BEHAVIOUR [None]
  - LIMB MALFORMATION [None]
